FAERS Safety Report 11170541 (Version 1)
Quarter: 2015Q2

REPORT INFORMATION
  Report Type: Report from Study
  Country: US (occurrence: US)
  Receive Date: 20150608
  Receipt Date: 20150608
  Transmission Date: 20150821
  Serious: Yes (Hospitalization)
  Sender: FDA-Public Use
  Company Number: US-BIOGENIDEC-2015BI074435

PATIENT
  Age: 43 Year
  Sex: Female

DRUGS (1)
  1. TYSABRI [Suspect]
     Active Substance: NATALIZUMAB
     Indication: MULTIPLE SCLEROSIS
     Route: 042
     Dates: start: 20080320

REACTIONS (7)
  - Nephrolithiasis [Not Recovered/Not Resolved]
  - Peripheral swelling [Recovered/Resolved]
  - Urethritis [Not Recovered/Not Resolved]
  - Cellulitis [Not Recovered/Not Resolved]
  - Escherichia infection [Not Recovered/Not Resolved]
  - Vomiting [Recovered/Resolved]
  - Arthropod sting [Recovered/Resolved]

NARRATIVE: CASE EVENT DATE: 20150509
